FAERS Safety Report 11082796 (Version 1)
Quarter: 2015Q2

REPORT INFORMATION
  Report Type: Report from Study
  Country: US (occurrence: US)
  Receive Date: 20150501
  Receipt Date: 20150501
  Transmission Date: 20150821
  Serious: Yes (Death)
  Sender: FDA-Public Use
  Company Number: US-MERCK-1504USA024070

PATIENT
  Age: 68 Year
  Sex: Female
  Weight: 90.25 kg

DRUGS (10)
  1. MS CONTIN [Concomitant]
     Active Substance: MORPHINE SULFATE
     Dosage: 15 MG, BID
     Route: 048
  2. NIFEDIPINE. [Concomitant]
     Active Substance: NIFEDIPINE
     Dosage: 30 MG, QD
     Route: 048
  3. REMERON [Concomitant]
     Active Substance: MIRTAZAPINE
     Dosage: 15 MG, HS
     Route: 048
  4. LEXAPRO [Concomitant]
     Active Substance: ESCITALOPRAM OXALATE
     Dosage: 10 MG, QD
     Route: 048
  5. PEMBROLIZUMAB. [Suspect]
     Active Substance: PEMBROLIZUMAB
     Indication: SARCOMA
     Dosage: 200 MG, Q3W
     Route: 042
     Dates: start: 20150318, end: 20150407
  6. GABAPENTIN. [Concomitant]
     Active Substance: GABAPENTIN
     Dosage: 200 MG, TID
     Route: 048
  7. PRILOSEC [Concomitant]
     Active Substance: OMEPRAZOLE MAGNESIUM
     Dosage: 20 MG, QD
     Route: 048
  8. LEVOTHYROXINE SODIUM. [Concomitant]
     Active Substance: LEVOTHYROXINE SODIUM
     Dosage: 150 MICROGRAM, QD
     Route: 048
  9. PERI COLACE (CASANTHRANOL (+) DOCUSATE SODIUM) [Concomitant]
     Dosage: 1 CAPSULE, QD
     Route: 048
  10. OXYCODONE [Concomitant]
     Active Substance: OXYCODONE
     Dosage: 10MG OR 15MG, EVERY 4HRS PRN
     Route: 048

REACTIONS (1)
  - Duodenal perforation [Fatal]

NARRATIVE: CASE EVENT DATE: 20150428
